FAERS Safety Report 20975334 (Version 1)
Quarter: 2022Q2

REPORT INFORMATION
  Report Type: Report from Study
  Country: CO (occurrence: None)
  Receive Date: 20220617
  Receipt Date: 20220617
  Transmission Date: 20220721
  Serious: Yes (Death, Other)
  Sender: FDA-Public Use
  Company Number: 2022A223443

PATIENT
  Age: 22499 Day
  Sex: Female
  Weight: 50 kg

DRUGS (1)
  1. FASLODEX [Suspect]
     Active Substance: FULVESTRANT
     Indication: Breast cancer female
     Route: 030
     Dates: start: 20220318, end: 20220516

REACTIONS (1)
  - Death [Fatal]

NARRATIVE: CASE EVENT DATE: 20220516
